FAERS Safety Report 10340436 (Version 2)
Quarter: 2015Q2

REPORT INFORMATION
  Report Type: Report from Study
  Country: AU (occurrence: AU)
  Receive Date: 20140724
  Receipt Date: 20150504
  Transmission Date: 20150821
  Serious: Yes (Other)
  Sender: FDA-Public Use
  Company Number: AU-BAXTER-2014BAX039579

PATIENT
  Age: 78 Year
  Sex: Male

DRUGS (1)
  1. PRISM0CAL B22 [Suspect]
     Active Substance: BICARBONATE ION\CHLORIDE ION\DEXTROSE\LACTIC ACID\MAGNESIUM\POTASSIUM
     Indication: HAEMODIALYSIS
     Route: 010

REACTIONS (1)
  - Seizure [Recovered/Resolved]
